FAERS Safety Report 5912385-5 (Version None)
Quarter: 2008Q4

REPORT INFORMATION
  Report Type: 
  Country: None (occurrence: None)
  Receive Date: 20081008
  Receipt Date: 20081003
  Transmission Date: 20090506
  Serious: Yes (Other)
  Sender: FDA-Public Use
  Company Number: US-BAYER-200813511BCC

PATIENT
  Age: 70 Year
  Sex: Female
  Weight: 50 kg

DRUGS (7)
  1. ASPIRIN [Suspect]
     Indication: HYPERTENSION
     Dosage: TOTAL DAILY DOSE: 81 MG  UNIT DOSE: 81 MG
     Dates: start: 20030101
  2. ONE-A-DAY WOMEN'S VITAMIN [Suspect]
     Indication: ROUTINE HEALTH MAINTENANCE
     Dosage: TOTAL DAILY DOSE: 1 DF  UNIT DOSE: 1 DF
     Dates: start: 20050101
  3. SPIRIVA [Concomitant]
  4. FORADIL [Concomitant]
  5. NEXIUM [Concomitant]
     Dosage: TOTAL DAILY DOSE: 40 MG
  6. HYDROCHLOROTHIAZIDE [Concomitant]
  7. BONIVA [Concomitant]

REACTIONS (3)
  - CAROTID ARTERY OCCLUSION [None]
  - CHEST PAIN [None]
  - SENSATION OF FOREIGN BODY [None]
